FAERS Safety Report 6304434-X (Version None)
Quarter: 2009Q3

REPORT INFORMATION
  Report Type: 
  Country: None (occurrence: None)
  Receive Date: 20090811
  Receipt Date: 20090805
  Transmission Date: 20100115
  Serious: Yes (Other)
  Sender: FDA-Public Use
  Company Number: BE-AMGEN-UK351525

PATIENT
  Age: 82 Year

DRUGS (6)
  1. NEULASTA [Suspect]
     Indication: CHEMOTHERAPY
     Route: 065
     Dates: start: 20090603
  2. CYCLOPHOSPHAMIDE [Concomitant]
     Route: 065
     Dates: start: 20090602
  3. DOXORUBICIN HCL [Concomitant]
     Route: 065
     Dates: start: 20090602
  4. PREDNISONE [Concomitant]
     Route: 065
     Dates: start: 20090602
  5. RITUXIMAB [Concomitant]
     Route: 065
     Dates: start: 20090602
  6. VINCRISTINE [Concomitant]
     Route: 065
     Dates: start: 20090602

REACTIONS (2)
  - DRUG INEFFECTIVE [None]
  - FEBRILE NEUTROPENIA [None]
